FAERS Safety Report 9833617 (Version 1)
Quarter: 2014Q1

REPORT INFORMATION
  Report Type: Spontaneous
  Country: US (occurrence: US)
  Receive Date: 20140122
  Receipt Date: 20140122
  Transmission Date: 20141002
  Serious: No
  Sender: FDA-Public Use
  Company Number: US-BIOGENIDEC-2013BI031915

PATIENT
  Age: 45 Year
  Sex: Female

DRUGS (2)
  1. AVONEX [Suspect]
     Indication: MULTIPLE SCLEROSIS
     Route: 030
     Dates: start: 20001124
  2. AVONEX [Suspect]
     Indication: MULTIPLE SCLEROSIS
     Route: 030
     Dates: start: 20091215

REACTIONS (16)
  - Visual impairment [Unknown]
  - Mental impairment [Not Recovered/Not Resolved]
  - Trigeminal neuralgia [Unknown]
  - Drug dose omission [Unknown]
  - Visual acuity reduced [Unknown]
  - Crying [Unknown]
  - Blood sodium decreased [Unknown]
  - Amnesia [Unknown]
  - Weight decreased [Not Recovered/Not Resolved]
  - Blindness traumatic [Recovered/Resolved]
  - Memory impairment [Not Recovered/Not Resolved]
  - Hypoaesthesia [Recovered/Resolved]
  - Gait disturbance [Unknown]
  - Muscular weakness [Unknown]
  - Anxiety [Unknown]
  - Myalgia [Recovered/Resolved]
